FAERS Safety Report 6018763-0 (Version None)
Quarter: 2008Q4

REPORT INFORMATION
  Report Type: 
  Country: None (occurrence: None)
  Receive Date: 20081222
  Receipt Date: 20081211
  Transmission Date: 20090506
  Serious: Yes (Other)
  Sender: FDA-Public Use
  Company Number: 038185

PATIENT
  Age: 13 Year
  Sex: Male

DRUGS (4)
  1. ADDERALL 10 [Suspect]
     Dosage: ORAL
     Route: 048
  2. VYVANSE [Suspect]
     Indication: ATTENTION DEFICIT/HYPERACTIVITY DISORDER
  3. CONCERTA [Suspect]
  4. SEROQUEL [Suspect]

REACTIONS (4)
  - AUTISM [None]
  - CONDITION AGGRAVATED [None]
  - OFF LABEL USE [None]
  - TIC [None]
